FAERS Safety Report 7574993-8 (Version None)
Quarter: 2011Q2

REPORT INFORMATION
  Report Type: 
  Country: None (occurrence: None)
  Receive Date: 20110627
  Receipt Date: 20110621
  Transmission Date: 20111010
  Serious: Yes (Hospitalization, Other)
  Sender: FDA-Public Use
  Company Number: CL-PFIZER INC-2011138705

PATIENT
  Age: 8 Year
  Sex: Male

DRUGS (1)
  1. ECALTA [Suspect]
     Dosage: 20 MG, UNK
     Route: 042
     Dates: start: 20110318

REACTIONS (3)
  - HAEMODYNAMIC INSTABILITY [None]
  - RESPIRATORY DISORDER [None]
  - BRONCHOSPASM [None]
